FAERS Safety Report 8112475-5 (Version None)
Quarter: 2011Q4

REPORT INFORMATION
  Report Type: 
  Country: None (occurrence: None)
  Receive Date: 20111227
  Receipt Date: 20111104
  Transmission Date: 20120403
  Serious: Yes (Other)
  Sender: FDA-Public Use
  Company Number: PHEH2011US008699

PATIENT
  Age: 50 Year
  Sex: Male

DRUGS (4)
  1. GILENYA [Suspect]
     Indication: MULTIPLE SCLEROSIS
     Dosage: 0.5 MG, QD, ORAL
     Route: 048
  2. NUVIGIL [Concomitant]
  3. LYRICA [Concomitant]
  4. CYMBALTA [Concomitant]

REACTIONS (4)
  - HYPOAESTHESIA ORAL [None]
  - IMMUNE SYSTEM DISORDER [None]
  - MULTIPLE SCLEROSIS RELAPSE [None]
  - HYPOAESTHESIA [None]
